FAERS Safety Report 7933176-X (Version None)
Quarter: 2011Q4

REPORT INFORMATION
  Report Type: 
  Country: None (occurrence: None)
  Receive Date: 20111122
  Receipt Date: 20111116
  Transmission Date: 20120403
  Serious: Yes (Hospitalization)
  Sender: FDA-Public Use
  Company Number: GB-JNJFOC-20111107682

PATIENT
  Age: 74 Year
  Sex: Female

DRUGS (10)
  1. FOLIC ACID [Concomitant]
  2. OMEPRAZOLE [Concomitant]
  3. AMITRIPTYLINE HCL [Concomitant]
  4. REMICADE [Suspect]
     Indication: RHEUMATOID ARTHRITIS
     Route: 042
     Dates: start: 20060425
  5. DIDRONEL [Concomitant]
  6. FUROSEMIDE [Concomitant]
  7. METHOTREXATE [Concomitant]
  8. ACETAMINOPHEN [Concomitant]
  9. ZAMADOL [Concomitant]
  10. SIMVASTATIN [Concomitant]

REACTIONS (1)
  - PATELLA FRACTURE [None]
